FAERS Safety Report 17839146 (Version 1)
Quarter: 2020Q2

REPORT INFORMATION
  Report Type: Spontaneous
  Country: US (occurrence: US)
  Receive Date: 20200528
  Receipt Date: 20200528
  Transmission Date: 20200714
  Serious: No
  Sender: FDA-Public Use
  Company Number: None

PATIENT
  Age: 30 Year
  Sex: Female
  Weight: 126 kg

DRUGS (7)
  1. GABAPENTIN. [Suspect]
     Active Substance: GABAPENTIN
     Indication: ANXIETY
     Route: 048
     Dates: start: 20200513, end: 20200526
  2. GABAPENTIN. [Suspect]
     Active Substance: GABAPENTIN
     Indication: PAIN
     Route: 048
     Dates: start: 20200513, end: 20200526
  3. CYMBALTA [Concomitant]
     Active Substance: DULOXETINE HYDROCHLORIDE
  4. XYZAL [Concomitant]
     Active Substance: LEVOCETIRIZINE DIHYDROCHLORIDE
  5. ACETAMINOPHEN. [Concomitant]
     Active Substance: ACETAMINOPHEN
  6. FERROUS SULFATE. [Concomitant]
     Active Substance: FERROUS SULFATE
  7. CPAP [Concomitant]
     Active Substance: DEVICE

REACTIONS (2)
  - Abdominal pain upper [None]
  - Constipation [None]

NARRATIVE: CASE EVENT DATE: 20200525
